FAERS Safety Report 6986079-1 (Version None)
Quarter: 2010Q3

REPORT INFORMATION
  Report Type: 
  Country: None (occurrence: None)
  Receive Date: 20100910
  Receipt Date: 20100825
  Transmission Date: 20110219
  Serious: Yes (Disabling)
  Sender: FDA-Public Use
  Company Number: OMPQ-PR-1008S-0764

PATIENT
  Age: 74 Year
  Sex: Male

DRUGS (1)
  1. OMNIPAQUE 140 [Suspect]
     Indication: PERIPHERAL ARTERIAL OCCLUSIVE DISEASE
     Dosage: SINGLE DOSE, I.V.
     Route: 042
     Dates: start: 20100315, end: 20100315

REACTIONS (4)
  - ABASIA [None]
  - CONDITION AGGRAVATED [None]
  - MUSCULAR WEAKNESS [None]
  - PAIN IN EXTREMITY [None]
